FAERS Safety Report 25516633 (Version 1)
Quarter: 2025Q3

REPORT INFORMATION
  Report Type: Spontaneous
  Country: US (occurrence: US)
  Receive Date: 20250704
  Receipt Date: 20250704
  Transmission Date: 20251020
  Serious: Yes (Other)
  Sender: TAKEDA
  Company Number: US-TAKEDA-2025TUS059399

PATIENT
  Sex: Female
  Weight: 73 kg

DRUGS (4)
  1. LIALDA [Suspect]
     Active Substance: MESALAMINE
     Indication: Colitis ulcerative
     Dosage: 4.8 GRAM, QD
  2. LIALDA [Suspect]
     Active Substance: MESALAMINE
     Indication: Irritable bowel syndrome
  3. LIALDA [Suspect]
     Active Substance: MESALAMINE
     Indication: Colitis
  4. MESALAMINE [Suspect]
     Active Substance: MESALAMINE
     Indication: Product used for unknown indication

REACTIONS (9)
  - Suicidal ideation [Unknown]
  - Pain [Unknown]
  - Illness [Unknown]
  - Inability to afford medication [Unknown]
  - Feeling abnormal [Unknown]
  - Drug ineffective [Unknown]
  - Diarrhoea [Unknown]
  - Vomiting [Unknown]
  - Asthenia [Unknown]
